FAERS Safety Report 5231636-6 (Version None)
Quarter: 2007Q1

REPORT INFORMATION
  Report Type: 
  Country: None (occurrence: None)
  Receive Date: 20061201
  Receipt Date: 20060913
  Transmission Date: 20070707
  Serious: No
  Sender: FDA-Public Use
  Company Number: 2006PV021167

PATIENT
  Age: 51 Year
  Sex: Male
  Weight: 95.2554 kg

DRUGS (7)
  1. BYETTA [Suspect]
     Indication: DIABETES MELLITUS NON-INSULIN-DEPENDENT
     Dosage: SEE IMAGE
     Route: 058
     Dates: start: 20051101, end: 20051201
  2. BYETTA [Suspect]
     Indication: DIABETES MELLITUS NON-INSULIN-DEPENDENT
     Dosage: SEE IMAGE
     Route: 058
     Dates: start: 20051201
  3. GLYBURIDE/METFORMIN 5/500MG [Concomitant]
  4. GEMFIBROZIL [Concomitant]
  5. LYRICA [Concomitant]
  6. ACTOS /USA/ [Concomitant]
  7. GABAPENTIN [Concomitant]

REACTIONS (8)
  - BLOOD GLUCOSE INCREASED [None]
  - CONDITION AGGRAVATED [None]
  - FEELING JITTERY [None]
  - NAUSEA [None]
  - NEUROPATHY [None]
  - TREMOR [None]
  - VOMITING [None]
  - WEIGHT DECREASED [None]
